FAERS Safety Report 18730129 (Version 2)
Quarter: 2022Q1

REPORT INFORMATION
  Report Type: Report from Study
  Country: US (occurrence: US)
  Receive Date: 20210112
  Receipt Date: 20220215
  Transmission Date: 20220423
  Serious: Yes (Hospitalization)
  Sender: FDA-Public Use
  Company Number: US-NOVARTISPH-NVSC2021US002716

PATIENT
  Sex: Female
  Weight: 20 kg

DRUGS (2)
  1. ILARIS [Suspect]
     Active Substance: CANAKINUMAB
     Indication: Juvenile idiopathic arthritis
     Dosage: 150 MG (EVERY 28 DAYS)
     Route: 058
     Dates: start: 20201208
  2. ILARIS [Suspect]
     Active Substance: CANAKINUMAB
     Indication: Still^s disease
     Dosage: 150 MG, (EVERY 6 WEEKS)
     Route: 058
     Dates: start: 20211206, end: 20220117

REACTIONS (1)
  - Inappropriate schedule of product administration [Unknown]
